FAERS Safety Report 6094507-1 (Version None)
Quarter: 2009Q1

REPORT INFORMATION
  Report Type: 
  Country: None (occurrence: None)
  Receive Date: 20090226
  Receipt Date: 20080905
  Transmission Date: 20090719
  Serious: Yes (Hospitalization)
  Sender: FDA-Public Use
  Company Number: JP-ABBOTT-09P-087-0559087-00

PATIENT
  Age: 63 Year
  Sex: Male
  Weight: 80 kg

DRUGS (6)
  1. CLARITH TABLETS [Suspect]
     Indication: PNEUMONIA MYCOPLASMAL
     Route: 048
     Dates: start: 20080123, end: 20080128
  2. CLARITH TABLETS [Suspect]
     Indication: PNEUMONIA BACTERIAL
  3. ZAFIRLUKAST [Concomitant]
     Indication: ASTHMA
     Route: 048
     Dates: start: 20080123, end: 20080128
  4. SERRAPEPTASE [Concomitant]
     Indication: ASTHMA
     Route: 048
     Dates: start: 20080123, end: 20080128
  5. SALMETEROL XINAFOATE [Concomitant]
     Indication: ASTHMA
     Route: 055
     Dates: start: 20080123, end: 20080128
  6. FLUTICASONE PROPIONATE [Concomitant]
     Indication: ASTHMA
     Route: 055
     Dates: start: 20080123, end: 20080128

REACTIONS (1)
  - ASTHMA [None]
